FAERS Safety Report 9397493 (Version 1)
Quarter: 2013Q3

REPORT INFORMATION
  Report Type: Spontaneous
  Country: GB (occurrence: GB)
  Receive Date: 20130712
  Receipt Date: 20130712
  Transmission Date: 20140515
  Serious: Yes (Hospitalization)
  Sender: FDA-Public Use
  Company Number: GB-NOVOPROD-382428

PATIENT
  Sex: Male
  Weight: 85 kg

DRUGS (3)
  1. LEVEMIR [Suspect]
     Indication: TYPE 2 DIABETES MELLITUS
     Dosage: 90 IU, QD
     Route: 065
  2. NOVORAPID PENFILL [Suspect]
     Indication: TYPE 2 DIABETES MELLITUS
     Dosage: UNK (20 - 24 UNITS WITH MEALS)
     Route: 065
     Dates: start: 201306
  3. METFORMIN [Concomitant]
     Indication: TYPE 2 DIABETES MELLITUS
     Dosage: UNK
     Route: 065

REACTIONS (2)
  - Cholelithiasis [Not Recovered/Not Resolved]
  - Blood glucose increased [Not Recovered/Not Resolved]
